FAERS Safety Report 18366247 (Version 2)
Quarter: 2020Q4

REPORT INFORMATION
  Report Type: Spontaneous
  Country: US (occurrence: US)
  Receive Date: 20201009
  Receipt Date: 20201014
  Transmission Date: 20210114
  Serious: Yes (Hospitalization)
  Sender: FDA-Public Use
  Company Number: US-PFIZER INC-2020390164

PATIENT
  Age: 73 Year
  Sex: Female
  Weight: 66.21 kg

DRUGS (6)
  1. ORENITRAM [Suspect]
     Active Substance: TREPROSTINIL
     Dosage: 2.5 MG
  2. AMLODIPINE BESILATE [Suspect]
     Active Substance: AMLODIPINE BESYLATE
     Dosage: UNK
  3. ORENITRAM [Suspect]
     Active Substance: TREPROSTINIL
     Indication: PULMONARY ARTERIAL HYPERTENSION
     Dosage: UNK
     Route: 048
     Dates: start: 20191206
  4. ORENITRAM [Suspect]
     Active Substance: TREPROSTINIL
     Dosage: UNK(EXTENDED RELEASE TABLET, 0.125 MG)
     Route: 048
  5. ORENITRAM [Suspect]
     Active Substance: TREPROSTINIL
     Dosage: UNK (EXTENDED RELEASE TABLET, 0.25 MG)
     Route: 048
  6. ORENITRAM [Suspect]
     Active Substance: TREPROSTINIL
     Dosage: 3.5 MG, 3X/DAY
     Route: 048
     Dates: start: 20191206

REACTIONS (5)
  - Mobility decreased [Unknown]
  - Diarrhoea [Unknown]
  - Blood pressure decreased [Unknown]
  - Vomiting [Unknown]
  - Urinary incontinence [Unknown]

NARRATIVE: CASE EVENT DATE: 20200906
